FAERS Safety Report 8107110 (Version 3)
Quarter: 2012Q4

REPORT INFORMATION
  Report Type: 
  Country: US (occurrence: US)
  Receive Date: 20110825
  Receipt Date: 20121018
  Transmission Date: 20130627
  Serious: Yes (Other)
  Sender: FDA-Public Use
  Company Number: US-PFIZER INC-2011196154

PATIENT
  Sex: Male

DRUGS (2)
  1. LIPITOR [Suspect]
     Indication: BLOOD CHOLESTEROL
     Dosage: UNK
     Dates: start: 200810
  2. LIPITOR [Suspect]
     Indication: PROPHYLAXIS

REACTIONS (4)
  - Muscle injury [Unknown]
  - Nerve injury [Unknown]
  - Muscle tightness [Unknown]
  - Tension [Unknown]
